FAERS Safety Report 6095697-7 (Version None)
Quarter: 2009Q1

REPORT INFORMATION
  Report Type: 
  Country: None (occurrence: None)
  Receive Date: 20090227
  Receipt Date: 20080623
  Transmission Date: 20090719
  Serious: No
  Sender: FDA-Public Use
  Company Number: A0729516A

PATIENT
  Age: 11 Year
  Sex: Female
  Weight: 60.9 kg

DRUGS (1)
  1. LAMICTAL [Suspect]
     Dosage: 50MGD PER DAY
     Route: 048

REACTIONS (1)
  - RASH GENERALISED [None]
